FAERS Safety Report 8507168-6 (Version None)
Quarter: 2012Q3

REPORT INFORMATION
  Report Type: 
  Country: None (occurrence: None)
  Receive Date: 20120712
  Receipt Date: 20120709
  Transmission Date: 20120928
  Serious: Yes (Other)
  Sender: FDA-Public Use
  Company Number: PHHY2012TH059132

PATIENT
  Age: 56 Year
  Sex: Male

DRUGS (4)
  1. ETHAMBUTOL HYDROCHLORIDE [Suspect]
  2. ISONIAZID [Suspect]
  3. PYRAZINAMIDE [Suspect]
  4. RIFAMPICIN [Suspect]

REACTIONS (7)
  - EOSINOPHILIA [None]
  - DRUG RASH WITH EOSINOPHILIA AND SYSTEMIC SYMPTOMS [None]
  - HEPATITIS [None]
  - LYMPHOPENIA [None]
  - RASH MACULO-PAPULAR [None]
  - PYREXIA [None]
  - PNEUMONITIS [None]
